FAERS Safety Report 16706688 (Version 5)
Quarter: 2024Q1

REPORT INFORMATION
  Report Type: Spontaneous
  Country: JP (occurrence: JP)
  Receive Date: 20190815
  Receipt Date: 20240102
  Transmission Date: 20240409
  Serious: Yes (Other)
  Sender: FDA-Public Use
  Company Number: JP-SANOFI-2017SA145546

PATIENT
  Age: 2 Year
  Sex: Female

DRUGS (22)
  1. VIGABATRIN [Suspect]
     Active Substance: VIGABATRIN
     Indication: Infantile spasms
     Dosage: 25 MG/KG, BID
     Route: 048
     Dates: start: 20170601, end: 20170604
  2. VIGABATRIN [Suspect]
     Active Substance: VIGABATRIN
     Dosage: 37.5 MG/KG, BID
     Route: 048
     Dates: start: 20170605, end: 20170612
  3. VIGABATRIN [Suspect]
     Active Substance: VIGABATRIN
     Dosage: 50 MG/KG, BID
     Route: 048
     Dates: start: 20170613, end: 20170619
  4. VIGABATRIN [Suspect]
     Active Substance: VIGABATRIN
     Dosage: 75 MG/KG, BID
     Route: 048
     Dates: start: 20170620, end: 20170629
  5. VIGABATRIN [Suspect]
     Active Substance: VIGABATRIN
     Dosage: 50 MG/KG, BID
     Route: 048
     Dates: start: 20170630, end: 20170702
  6. VIGABATRIN [Suspect]
     Active Substance: VIGABATRIN
     Dosage: 37.5 MG/KG, BID
     Route: 048
     Dates: start: 20170703, end: 20170707
  7. VIGABATRIN [Suspect]
     Active Substance: VIGABATRIN
     Dosage: 25 MG/KG, BID
     Route: 048
     Dates: start: 20170708, end: 20170711
  8. VIGABATRIN [Suspect]
     Active Substance: VIGABATRIN
     Dosage: 23.6 MG/KG, BID
     Route: 048
     Dates: start: 20180803, end: 201808
  9. VIGABATRIN [Suspect]
     Active Substance: VIGABATRIN
     Dosage: 36 MG/KG, BID
     Route: 048
     Dates: start: 20180820, end: 20180905
  10. VIGABATRIN [Suspect]
     Active Substance: VIGABATRIN
     Dosage: 22.55 MG/KG, BID
     Route: 048
     Dates: start: 20180906, end: 20180926
  11. VIGABATRIN [Suspect]
     Active Substance: VIGABATRIN
     Dosage: 33.85 MG/KG, BID
     Route: 048
     Dates: start: 20180927, end: 20181014
  12. VIGABATRIN [Suspect]
     Active Substance: VIGABATRIN
     Dosage: 45.1 MG/KG, BID
     Route: 048
     Dates: start: 20181015, end: 20181031
  13. VIGABATRIN [Suspect]
     Active Substance: VIGABATRIN
     Dosage: 56.4 MG/KG, BID
     Route: 048
     Dates: start: 20181101, end: 20181106
  14. VIGABATRIN [Suspect]
     Active Substance: VIGABATRIN
     Dosage: 56 MG/KG, BID
     Route: 048
     Dates: start: 20181107, end: 20181121
  15. VIGABATRIN [Suspect]
     Active Substance: VIGABATRIN
     Dosage: 64.75 MG/KG, BID
     Route: 048
     Dates: start: 20181122, end: 20190109
  16. VIGABATRIN [Suspect]
     Active Substance: VIGABATRIN
     Dosage: 66.2 MG/KG, BID
     Route: 048
     Dates: start: 20190110, end: 20190303
  17. VIGABATRIN [Suspect]
     Active Substance: VIGABATRIN
     Dosage: 88.25 MG/KG, BID
     Route: 048
     Dates: start: 20190304, end: 20190317
  18. VIGABATRIN [Suspect]
     Active Substance: VIGABATRIN
     Dosage: 66.2 MG/KG, BID
     Route: 048
     Dates: start: 20190318, end: 20190410
  19. VIGABATRIN [Suspect]
     Active Substance: VIGABATRIN
     Dosage: 68.7 MG/KG, BID
     Route: 048
     Dates: start: 20190411, end: 20190527
  20. VIGABATRIN [Suspect]
     Active Substance: VIGABATRIN
     Dosage: 60 MG/KG, BID
     Route: 048
     Dates: start: 20190528, end: 20190710
  21. ZONISAMIDE [Concomitant]
     Active Substance: ZONISAMIDE
     Indication: Infantile spasms
     Dosage: DAILY DOSE: 100 MG
     Route: 048
     Dates: start: 2018
  22. TOPIRAMATE [Concomitant]
     Active Substance: TOPIRAMATE
     Indication: Infantile spasms
     Dosage: DAILY DOSE: 70 MG
     Route: 048
     Dates: start: 2018

REACTIONS (3)
  - Retinogram abnormal [Unknown]
  - Drug ineffective [Unknown]
  - Drug ineffective [Unknown]

NARRATIVE: CASE EVENT DATE: 20180801
